APPROVED DRUG PRODUCT: TRIAMCINOLONE ACETONIDE
Active Ingredient: TRIAMCINOLONE ACETONIDE
Strength: 0.1%
Dosage Form/Route: PASTE;DENTAL
Application: A206312 | Product #001
Applicant: SCIEGEN PHARMACEUTICALS INC
Approved: Aug 11, 2016 | RLD: No | RS: No | Type: DISCN